FAERS Safety Report 18046258 (Version 3)
Quarter: 2020Q3

REPORT INFORMATION
  Report Type: Spontaneous
  Country: JP (occurrence: JP)
  Receive Date: 20200720
  Receipt Date: 20200901
  Transmission Date: 20201103
  Serious: Yes (Other)
  Sender: FDA-Public Use
  Company Number: JP-JNJFOC-20200715073

PATIENT

DRUGS (1)
  1. EVITHROM [Suspect]
     Active Substance: THROMBIN HUMAN
     Indication: AORTIC VALVE REPLACEMENT
     Route: 061

REACTIONS (2)
  - Procedural complication [Unknown]
  - Product physical consistency issue [Unknown]

NARRATIVE: CASE EVENT DATE: 20200629
